FAERS Safety Report 17912432 (Version 1)
Quarter: 2020Q2

REPORT INFORMATION
  Report Type: Spontaneous
  Country: AR (occurrence: AR)
  Receive Date: 20200618
  Receipt Date: 20200618
  Transmission Date: 20200714
  Serious: Yes (Other)
  Sender: FDA-Public Use
  Company Number: AR-PFIZER INC-2020236149

PATIENT
  Age: 65 Year
  Sex: Female

DRUGS (1)
  1. IBRANCE [Suspect]
     Active Substance: PALBOCICLIB
     Indication: BREAST CANCER METASTATIC
     Dosage: 125 MG, CYCLIC (3/1 SCHEME)
     Dates: start: 20190903

REACTIONS (3)
  - Visual impairment [Unknown]
  - Maculopathy [Unknown]
  - Blindness [Unknown]

NARRATIVE: CASE EVENT DATE: 202006
